FAERS Safety Report 4695670-7 (Version None)
Quarter: 2005Q2

REPORT INFORMATION
  Report Type: 
  Country: None (occurrence: None)
  Receive Date: 20050617
  Receipt Date: 20050617
  Transmission Date: 20051028
  Serious: Yes (Other)
  Sender: FDA-Public Use
  Company Number: None

PATIENT
  Age: 74 Year
  Sex: Male
  Weight: 98.9 kg

DRUGS (1)
  1. SIMVASTATIN [Suspect]

REACTIONS (1)
  - MYALGIA [None]
